FAERS Safety Report 13099248 (Version 6)
Quarter: 2018Q2

REPORT INFORMATION
  Report Type: Report from Study
  Country: US (occurrence: US)
  Receive Date: 20170109
  Receipt Date: 20180615
  Transmission Date: 20180711
  Serious: Yes (Death, Hospitalization, Other)
  Sender: FDA-Public Use
  Company Number: US-ACTELION-A-NJ2016-147735

PATIENT
  Age: 70 Year
  Sex: Female

DRUGS (41)
  1. MULTIVITAMIN [Concomitant]
     Active Substance: VITAMINS
  2. HEPARIN [Concomitant]
     Active Substance: HEPARIN SODIUM
  3. TORSEMIDE. [Concomitant]
     Active Substance: TORSEMIDE
  4. HYDROMORPHONE [Concomitant]
     Active Substance: HYDROMORPHONE
  5. CALCIUM [Concomitant]
     Active Substance: CALCIUM
  6. PREMARIN [Concomitant]
     Active Substance: ESTROGENS, CONJUGATED
  7. PHYTONADIONE. [Concomitant]
     Active Substance: PHYTONADIONE
  8. TUMS [Concomitant]
     Active Substance: CALCIUM CARBONATE
  9. VANCOMYCIN [Concomitant]
     Active Substance: VANCOMYCIN
  10. MORPHINE [Concomitant]
     Active Substance: MORPHINE
  11. LORAZEPAM. [Concomitant]
     Active Substance: LORAZEPAM
  12. IMURAN [Concomitant]
     Active Substance: AZATHIOPRINE
  13. REVATIO [Concomitant]
     Active Substance: SILDENAFIL CITRATE
  14. GLYCOPYRROLATE. [Concomitant]
     Active Substance: GLYCOPYRROLATE
  15. LACTULOSE. [Concomitant]
     Active Substance: LACTULOSE
  16. SPIRONOLACTONE. [Concomitant]
     Active Substance: SPIRONOLACTONE
  17. MAGNESIUM SULFATE. [Concomitant]
     Active Substance: MAGNESIUM SULFATE
  18. POLYETHYLENE GLYCOL [Concomitant]
     Active Substance: POLYETHYLENE GLYCOLS
  19. ONDANSETRON [Concomitant]
     Active Substance: ONDANSETRON
  20. VITAMIN B COMPLEX [Concomitant]
     Active Substance: CYANOCOBALAMIN\DEXPANTHENOL\NIACINAMIDE\PYRIDOXINE HYDROCHLORIDE\RIBOFLAVIN 5^-PHOSPHATE SODIUM\THIAMINE HYDROCHLORIDE\VITAMIN B COMPLEX
  21. EVISTA [Concomitant]
     Active Substance: RALOXIFENE HYDROCHLORIDE
  22. MEGESTROL [Concomitant]
     Active Substance: MEGESTROL
  23. TYLENOL EXTRA STRENGTH [Concomitant]
     Active Substance: ACETAMINOPHEN
  24. INFLUENZA VACCINE [Concomitant]
     Active Substance: INFLUENZA VIRUS VACCINE
  25. POTASSIUM [Concomitant]
     Active Substance: POTASSIUM
  26. DIPHTHERIA VACCINE W/PERTUSSIS VACC [Concomitant]
  27. ALBUMIN [Concomitant]
     Active Substance: ALBUMIN HUMAN
  28. CEFEPIME [Concomitant]
     Active Substance: CEFEPIME HYDROCHLORIDE
  29. LASIX [Concomitant]
     Active Substance: FUROSEMIDE
  30. LYSINE [Concomitant]
     Active Substance: LYSINE
  31. VITAMIN D3 [Concomitant]
     Active Substance: CHOLECALCIFEROL
  32. SENNA LAXATIVE AND DOCUSATE SODIUM [Concomitant]
  33. BISACODYL. [Concomitant]
     Active Substance: BISACODYL
  34. IPRATROPIUM/ALBUTEROL [Concomitant]
     Active Substance: ALBUTEROL\IPRATROPIUM
  35. OPSUMIT [Suspect]
     Active Substance: MACITENTAN
     Indication: PORTOPULMONARY HYPERTENSION
     Dosage: 10 MG, QD
     Route: 048
     Dates: start: 20160308, end: 20161225
  36. RIFAXIMIN. [Concomitant]
     Active Substance: RIFAXIMIN
  37. TRAMADOL. [Concomitant]
     Active Substance: TRAMADOL
  38. LIDOCAINE. [Concomitant]
     Active Substance: LIDOCAINE
  39. METRONIDAZOLE. [Concomitant]
     Active Substance: METRONIDAZOLE
  40. LANSOPRAZOLE. [Concomitant]
     Active Substance: LANSOPRAZOLE
  41. MELATONIN [Concomitant]
     Active Substance: MELATONIN

REACTIONS (27)
  - Hepatic cirrhosis [Not Recovered/Not Resolved]
  - Pancreatitis bacterial [Not Recovered/Not Resolved]
  - Dyspnoea [Recovered/Resolved]
  - Telangiectasia [Unknown]
  - Pneumatosis intestinalis [Not Recovered/Not Resolved]
  - Seborrhoeic keratosis [Unknown]
  - Pruritus [Unknown]
  - Model for end stage liver disease score increased [Not Recovered/Not Resolved]
  - Blood bilirubin increased [Unknown]
  - Abdominal distension [Not Recovered/Not Resolved]
  - Rib fracture [Unknown]
  - Peritonitis bacterial [Not Recovered/Not Resolved]
  - Autoimmune hepatitis [Not Recovered/Not Resolved]
  - Ascites [Not Recovered/Not Resolved]
  - Oxygen saturation decreased [Not Recovered/Not Resolved]
  - Diet noncompliance [Not Recovered/Not Resolved]
  - Pulmonary oedema [Recovered/Resolved]
  - Jaundice [Not Recovered/Not Resolved]
  - Fluid overload [Recovered/Resolved]
  - Photodermatosis [Unknown]
  - Subdural haematoma [Not Recovered/Not Resolved]
  - Disease progression [Not Recovered/Not Resolved]
  - Hepatic encephalopathy [Unknown]
  - Abdominal tenderness [Not Recovered/Not Resolved]
  - Fall [Fatal]
  - Condition aggravated [Not Recovered/Not Resolved]
  - Pulmonary arterial hypertension [Recovered/Resolved]

NARRATIVE: CASE EVENT DATE: 20160726
